FAERS Safety Report 6521304-2 (Version None)
Quarter: 2009Q4

REPORT INFORMATION
  Report Type: 
  Country: None (occurrence: None)
  Receive Date: 20091230
  Receipt Date: 20091215
  Transmission Date: 20100525
  Serious: Yes (Other)
  Sender: FDA-Public Use
  Company Number: US-BAYER-US-2007-031014

PATIENT
  Age: 49 Year
  Sex: Female
  Weight: 49 kg

DRUGS (16)
  1. BETASERON [Suspect]
     Indication: RELAPSING-REMITTING MULTIPLE SCLEROSIS
     Dosage: TOTAL DAILY DOSE: 8 MIU
     Route: 058
     Dates: start: 19930330
  2. BACLOFEN [Concomitant]
     Indication: MUSCLE SPASMS
     Dosage: TOTAL DAILY DOSE: 80 MG  UNIT DOSE: 10 MG
  3. FLONASE [Concomitant]
     Indication: RHINITIS ALLERGIC
     Dosage: 3X EACH MONTH
  4. CLARINEX [Concomitant]
     Indication: MULTIPLE ALLERGIES
     Dosage: 3X EACH MONTH
  5. ADVIL [Concomitant]
     Dosage: BETWEEN 2 TO 4 PILLS DAILY
  6. EVENING PRIMROSE OIL [Concomitant]
     Dosage: TOTAL DAILY DOSE: 1000 MG
  7. GLUCOSAMINE COMPLEX [Concomitant]
     Dosage: TOTAL DAILY DOSE: 1500 MG  UNIT DOSE: 500 MG
  8. TUMS [Concomitant]
     Dosage: TOTAL DAILY DOSE: 2000 MG  UNIT DOSE: 1000 MG
  9. VITAMIN C [Concomitant]
     Dosage: TOTAL DAILY DOSE: 500 MG  UNIT DOSE: 500 MG
  10. VITAMIN D [Concomitant]
     Dosage: TOTAL DAILY DOSE: 400 IU
  11. VITAMIN B-12 [Concomitant]
     Dosage: TOTAL DAILY DOSE: 250 ?G
  12. CENTRUM SILVER [Concomitant]
     Dosage: TOTAL DAILY DOSE: 1 DF
  13. STEROID [Concomitant]
     Dates: start: 20010101, end: 20030101
  14. FLUTICASONE [Concomitant]
     Indication: MULTIPLE ALLERGIES
     Dosage: 3X EACH MONTH
  15. NASONEX [Concomitant]
     Indication: MULTIPLE ALLERGIES
     Dosage: 3 X EACH MONTH
  16. PREMPRO [Concomitant]
     Dates: end: 20051101

REACTIONS (12)
  - ARTHRALGIA [None]
  - BONE PAIN [None]
  - BREAST CANCER FEMALE [None]
  - CHILLS [None]
  - GAIT DISTURBANCE [None]
  - HOT FLUSH [None]
  - INJECTION SITE HAEMATOMA [None]
  - INJECTION SITE MASS [None]
  - INJECTION SITE PAIN [None]
  - INJECTION SITE SWELLING [None]
  - NIGHT SWEATS [None]
  - PYREXIA [None]
